FAERS Safety Report 5465591-0 (Version None)
Quarter: 2007Q3

REPORT INFORMATION
  Report Type: 
  Country: None (occurrence: None)
  Receive Date: 20070919
  Receipt Date: 20070919
  Transmission Date: 20080115
  Serious: Yes (Other)
  Sender: FDA-Public Use
  Company Number: None

PATIENT
  Age: 46 Year
  Sex: Female
  Weight: 56.6996 kg

DRUGS (9)
  1. REQUIP [Suspect]
     Indication: RESTLESS LEGS SYNDROME
     Dosage: 1 MG AT BEDTIME PO
     Route: 048
     Dates: start: 20070905, end: 20070908
  2. IRBESARTAN [Concomitant]
  3. FOLIC ACID [Concomitant]
  4. LEVOTHYROXINE SODIUM [Concomitant]
  5. SERTRALINE [Concomitant]
  6. SIMAVISTATIN [Concomitant]
  7. FIORICET [Concomitant]
  8. OXYCODONE HCL [Concomitant]
  9. BOTULINUM THERAPY [Concomitant]

REACTIONS (5)
  - ASTHENOPIA [None]
  - HALO VISION [None]
  - HEADACHE [None]
  - VISION BLURRED [None]
  - VISUAL DISTURBANCE [None]
